FAERS Safety Report 13242523 (Version 1)
Quarter: 2017Q1

REPORT INFORMATION
  Report Type: Spontaneous
  Country: US (occurrence: US)
  Receive Date: 20170216
  Receipt Date: 20170216
  Transmission Date: 20170428
  Serious: Yes (Life-Threatening, Hospitalization)
  Sender: FDA-Public Use
  Company Number: None

PATIENT
  Age: 58 Year
  Sex: Male
  Weight: 139.5 kg

DRUGS (1)
  1. ELIQUIS [Suspect]
     Active Substance: APIXABAN
     Indication: ATRIAL FIBRILLATION
     Route: 048

REACTIONS (8)
  - Pericardial effusion [None]
  - Catheter site haemorrhage [None]
  - Atrial fibrillation [None]
  - Mental status changes [None]
  - Pleural effusion [None]
  - Cerebrovascular accident [None]
  - Ischaemic stroke [None]
  - Embolic stroke [None]

NARRATIVE: CASE EVENT DATE: 20161130
